FAERS Safety Report 15061788 (Version 10)
Quarter: 2021Q2

REPORT INFORMATION
  Report Type: Report from Study
  Country: JP (occurrence: JP)
  Receive Date: 20180625
  Receipt Date: 20210622
  Transmission Date: 20210716
  Serious: Yes (Hospitalization)
  Sender: FDA-Public Use
  Company Number: JP-ROCHE-2125486

PATIENT
  Age: 48 Year
  Sex: Female
  Weight: 47 kg

DRUGS (147)
  1. EMEND [Concomitant]
     Active Substance: APREPITANT
     Dates: start: 20180522, end: 20180523
  2. SOLACET F [Concomitant]
     Active Substance: CALCIUM CHLORIDE\POTASSIUM CHLORIDE\SODIUM ACETATE\SODIUM CHLORIDE
     Dates: start: 20180613, end: 20180614
  3. DOMPERIDONE [Concomitant]
     Active Substance: DOMPERIDONE
     Indication: NAUSEA
     Dates: start: 20180614, end: 20180619
  4. CEFMETAZOLE SODIUM [Concomitant]
     Active Substance: CEFMETAZOLE SODIUM
     Route: 042
     Dates: start: 20180620, end: 20180620
  5. HIRUDOID [Concomitant]
     Active Substance: GLYCOSAMINOGLYCANS
     Indication: DRY SKIN
     Dates: start: 20180312
  6. LYRICA [Concomitant]
     Active Substance: PREGABALIN
     Dates: start: 20180517, end: 20180619
  7. LYRICA [Concomitant]
     Active Substance: PREGABALIN
     Dates: start: 20180717
  8. ACELIO [Concomitant]
     Active Substance: ACETAMINOPHEN
     Dates: start: 20180907, end: 20180912
  9. XYLOCAINE [Concomitant]
     Active Substance: LIDOCAINE HYDROCHLORIDE
     Indication: GENERAL ANAESTHESIA
     Dates: start: 20180425, end: 20180426
  10. SUPRANE [Concomitant]
     Active Substance: DESFLURANE
     Indication: GENERAL ANAESTHESIA
     Dates: start: 20180425, end: 20180425
  11. NEOSYNESIN KOWA [Concomitant]
     Indication: GENERAL ANAESTHESIA
     Dates: start: 20180425, end: 20180425
  12. PHYSIO 140 [Concomitant]
     Active Substance: CALCIUM GLUCONATE\DEXTROSE\MAGNESIUM CHLORIDE\POTASSIUM CHLORIDE\SODIUM ACETATE\SODIUM CHLORIDE\TRISODIUM CITRATE DIHYDRATE
     Dates: start: 20180613, end: 20180613
  13. POPSCAINE [Concomitant]
     Active Substance: LEVOBUPIVACAINE HYDROCHLORIDE
     Dates: start: 20180425, end: 20180427
  14. SOLACET D [Concomitant]
     Dates: start: 20180425, end: 20180504
  15. SOLACET D [Concomitant]
     Dates: start: 20180522, end: 20180522
  16. FESIN (JAPAN) [Concomitant]
     Active Substance: IRON SUCROSE
     Indication: PROCEDURAL HAEMORRHAGE
     Dates: start: 20180426, end: 20180507
  17. OXIFAST [Concomitant]
     Active Substance: OXYCODONE
     Indication: PROCEDURAL PAIN
     Dates: start: 20180516, end: 20180523
  18. GASCON (JAPAN) [Concomitant]
     Dates: start: 20180507, end: 20180516
  19. ROSUVASTATIN CALCIUM. [Concomitant]
     Active Substance: ROSUVASTATIN CALCIUM
     Indication: HYPERCHOLESTEROLAEMIA
     Dates: start: 20180507, end: 20180516
  20. GASTER [Concomitant]
     Active Substance: FAMOTIDINE
     Dates: start: 20180612, end: 20180612
  21. ERYTHROCYTES [Concomitant]
     Active Substance: HUMAN RED BLOOD CELL
     Dosage: IRRADIATED ERYTHROCYTE
     Dates: start: 20180425, end: 20180425
  22. CLOSTRIDIUM BUTYRICUM [Concomitant]
     Active Substance: CLOSTRIDIUM BUTYRICUM SPORES STRAIN M-55
     Indication: DIARRHOEA
     Dates: start: 20180614, end: 20180619
  23. LACTEC [Concomitant]
     Active Substance: CALCIUM CHLORIDE ANHYDROUS\POTASSIUM CHLORIDE\SODIUM CHLORIDE\SODIUM LACTATE
     Dates: start: 20180619
  24. LOXOPROFEN NA [Concomitant]
     Active Substance: LOXOPROFEN SODIUM
     Indication: PAIN
     Dates: start: 20180623, end: 20180623
  25. DORMICUM [Concomitant]
     Dates: start: 20180907, end: 20180907
  26. ATEZOLIZUMAB. [Suspect]
     Active Substance: ATEZOLIZUMAB
     Indication: OVARIAN CANCER
     Dosage: DATE OF MOST RECENT DOSE OF ATEZOLIZUMAB/PLACEBO PRIOR TO SAE (ABDOMINAL PAIN) ONSET 03/APR/2018?ON
     Route: 042
     Dates: start: 20180220
  27. TALION [Concomitant]
     Indication: SEASONAL ALLERGY
     Dates: start: 20180219
  28. OXYCONTIN [Concomitant]
     Active Substance: OXYCODONE HYDROCHLORIDE
     Indication: TUMOUR PAIN
     Dates: start: 20180223, end: 20180424
  29. OXINORM (JAPAN) [Concomitant]
     Active Substance: OXYCODONE HYDROCHLORIDE
     Indication: TUMOUR PAIN
     Dates: start: 20180223, end: 20180424
  30. OXINORM (JAPAN) [Concomitant]
     Active Substance: OXYCODONE HYDROCHLORIDE
     Indication: PROCEDURAL PAIN
     Dates: start: 20180523, end: 20180619
  31. ESLAX [Concomitant]
     Active Substance: ROCURONIUM BROMIDE
     Dates: start: 20180907, end: 20180907
  32. BRIDION [Concomitant]
     Active Substance: SUGAMMADEX
     Indication: GENERAL ANAESTHESIA
     Route: 042
     Dates: start: 20180425, end: 20180425
  33. BRIDION [Concomitant]
     Active Substance: SUGAMMADEX
     Route: 042
     Dates: start: 20180907, end: 20180907
  34. POPSCAINE [Concomitant]
     Active Substance: LEVOBUPIVACAINE HYDROCHLORIDE
     Dates: start: 20180907, end: 20180907
  35. EPHEDRINE HYDROCHLORIDE [Concomitant]
     Active Substance: EPHEDRINE HYDROCHLORIDE
     Indication: GENERAL ANAESTHESIA
     Dates: start: 20180425, end: 20180425
  36. KENEI G [Concomitant]
     Active Substance: GLYCERIN
     Dosage: KENEI G ENEMA 50%
     Dates: start: 20180425, end: 20180425
  37. KETALAR [Concomitant]
     Active Substance: KETAMINE HYDROCHLORIDE
     Indication: PAIN
     Route: 042
     Dates: start: 20180426, end: 20180502
  38. PRIMPERAN [Concomitant]
     Active Substance: METOCLOPRAMIDE HYDROCHLORIDE
     Dates: start: 20180614, end: 20180614
  39. DAIKENCHUTO [Concomitant]
     Active Substance: HERBALS
     Dates: start: 20180517, end: 20180619
  40. BEPOTASTINE BESILATE [Concomitant]
     Active Substance: BEPOTASTINE BESYLATE
     Dates: start: 20180507, end: 20180516
  41. BEPOTASTINE BESILATE [Concomitant]
     Active Substance: BEPOTASTINE BESYLATE
     Dates: start: 20180711
  42. SOLACET F [Concomitant]
     Active Substance: CALCIUM CHLORIDE\POTASSIUM CHLORIDE\SODIUM ACETATE\SODIUM CHLORIDE
     Dates: start: 20180522, end: 20180522
  43. GRAN [Concomitant]
     Active Substance: FILGRASTIM
     Dates: start: 20180623, end: 20180625
  44. SOLU?CORTEF [Concomitant]
     Active Substance: HYDROCORTISONE SODIUM SUCCINATE
     Indication: INFUSION SITE EXTRAVASATION
     Route: 058
     Dates: start: 20180612, end: 20180612
  45. BEVACIZUMAB. [Suspect]
     Active Substance: BEVACIZUMAB
     Indication: OVARIAN CANCER
     Dosage: DATE OF MOST RECENT DOSE 742 MG OF BEVACEZUMAB PRIOR TO SAE (ABDOMINAL PAIN) ONSET 13/MAR/2018?DATE
     Route: 042
     Dates: start: 20180220
  46. PACLITAXEL. [Suspect]
     Active Substance: PACLITAXEL
     Indication: OVARIAN CANCER
     Dosage: DATE OF MOST RECENT DOSE 259 MG OF PACLITAXEL PRIOR TO SAE (ABDOMINAL PAIN) ONSET 03/APR/2018?ON 22/
     Route: 042
     Dates: start: 20180220
  47. CRESTOR [Concomitant]
     Active Substance: ROSUVASTATIN CALCIUM
     Indication: HYPERCHOLESTEROLAEMIA
     Dates: start: 201709, end: 20180425
  48. MAGMITT [Concomitant]
     Active Substance: MAGNESIUM OXIDE
     Dates: start: 20180507, end: 20180516
  49. MAGMITT [Concomitant]
     Active Substance: MAGNESIUM OXIDE
     Dates: start: 20180704
  50. MAGMITT [Concomitant]
     Active Substance: MAGNESIUM OXIDE
     Dates: start: 20181029
  51. OXINORM (JAPAN) [Concomitant]
     Active Substance: OXYCODONE HYDROCHLORIDE
     Dates: start: 20190620
  52. SYMPROIC [Concomitant]
     Active Substance: NALDEMEDINE
     Dates: start: 20180920
  53. NORITREN [Concomitant]
     Active Substance: NORTRIPTYLINE HYDROCHLORIDE
     Dates: start: 20180711
  54. ZYPREXA [Concomitant]
     Active Substance: OLANZAPINE
     Indication: NAUSEA
     Dates: start: 20180405, end: 20180424
  55. DAIKENCHUTO [Concomitant]
     Active Substance: HERBALS
     Indication: ABDOMINAL DISTENSION
     Dates: start: 20180427, end: 20180516
  56. SOLACET F [Concomitant]
     Active Substance: CALCIUM CHLORIDE\POTASSIUM CHLORIDE\SODIUM ACETATE\SODIUM CHLORIDE
     Dates: start: 20180611, end: 20180611
  57. ROHYPNOL [Concomitant]
     Active Substance: FLUNITRAZEPAM
     Dates: start: 20180621, end: 20180625
  58. MAXIPIME [Concomitant]
     Active Substance: CEFEPIME HYDROCHLORIDE
     Dates: start: 20180624, end: 20180630
  59. SYMPROIC [Concomitant]
     Active Substance: NALDEMEDINE
     Dates: start: 20180507, end: 20180516
  60. FENTANYL. [Concomitant]
     Active Substance: FENTANYL
     Dates: start: 20180425, end: 20180426
  61. REMIFENTANIL [Concomitant]
     Active Substance: REMIFENTANIL
     Route: 042
     Dates: start: 20180425, end: 20180425
  62. XYLOCAINE [Concomitant]
     Active Substance: LIDOCAINE HYDROCHLORIDE
     Indication: PAIN
     Dates: start: 20180612, end: 20180612
  63. SUPRANE [Concomitant]
     Active Substance: DESFLURANE
     Dates: start: 20180907
  64. DECADRON (DEXAMETHASONE SODIUM PHOSPHATE) [Concomitant]
     Active Substance: DEXAMETHASONE SODIUM PHOSPHATE
     Route: 042
     Dates: start: 20180612, end: 20180612
  65. VOLUVEN [Concomitant]
     Active Substance: HYDROXYETHYL STARCH 130/0.4
     Route: 042
     Dates: start: 20180425, end: 20180425
  66. SENNOSIDE [Concomitant]
     Active Substance: SENNOSIDES
     Dates: start: 20180423, end: 20180423
  67. OXIFAST [Concomitant]
     Active Substance: OXYCODONE
     Indication: PAIN
     Dates: start: 20180426, end: 20180506
  68. DAIKENCHUTO [Concomitant]
     Active Substance: HERBALS
     Dates: start: 20180704
  69. EMEND [Concomitant]
     Active Substance: APREPITANT
     Dates: start: 20180612, end: 20180613
  70. ALOXI [Concomitant]
     Active Substance: PALONOSETRON HYDROCHLORIDE
     Route: 042
     Dates: start: 20180522, end: 20180522
  71. ALOXI [Concomitant]
     Active Substance: PALONOSETRON HYDROCHLORIDE
     Dates: start: 20180612, end: 20180612
  72. RESTAMIN KOWA [Concomitant]
     Dates: start: 20180522, end: 20180522
  73. SERENACE [Concomitant]
     Active Substance: HALOPERIDOL
     Dates: start: 20180621, end: 20180628
  74. NICARDIPINE HCL [Concomitant]
     Active Substance: NICARDIPINE HYDROCHLORIDE
     Dates: start: 20180907, end: 20180907
  75. OXYCODONE [Concomitant]
     Active Substance: OXYCODONE
     Indication: MYALGIA
  76. MAGMITT [Concomitant]
     Active Substance: MAGNESIUM OXIDE
     Dates: start: 201802, end: 20180422
  77. OXYCONTIN [Concomitant]
     Active Substance: OXYCODONE HYDROCHLORIDE
     Indication: PROCEDURAL PAIN
     Dates: start: 20180507, end: 20180516
  78. HIRUDOID [Concomitant]
     Active Substance: GLYCOSAMINOGLYCANS
     Dates: start: 20190107
  79. FLUTICASONE FUROATE [Concomitant]
     Active Substance: FLUTICASONE FUROATE
     Indication: SEASONAL ALLERGY
     Route: 061
     Dates: start: 20180328, end: 20180422
  80. NORITREN [Concomitant]
     Active Substance: NORTRIPTYLINE HYDROCHLORIDE
     Indication: PERIPHERAL SENSORY NEUROPATHY
     Dates: start: 20180404, end: 20180424
  81. PROPOFOL. [Concomitant]
     Active Substance: PROPOFOL
     Dates: start: 20180907, end: 20180907
  82. DECADRON (DEXAMETHASONE SODIUM PHOSPHATE) [Concomitant]
     Active Substance: DEXAMETHASONE SODIUM PHOSPHATE
     Indication: PROPHYLAXIS OF NAUSEA AND VOMITING
     Route: 042
     Dates: start: 20180425, end: 20180425
  83. NEOSYNESIN KOWA [Concomitant]
     Dates: start: 20180907, end: 20180907
  84. PHYSIO 140 [Concomitant]
     Active Substance: CALCIUM GLUCONATE\DEXTROSE\MAGNESIUM CHLORIDE\POTASSIUM CHLORIDE\SODIUM ACETATE\SODIUM CHLORIDE\TRISODIUM CITRATE DIHYDRATE
     Dates: start: 20180425, end: 20180428
  85. PHYSIO 140 [Concomitant]
     Active Substance: CALCIUM GLUCONATE\DEXTROSE\MAGNESIUM CHLORIDE\POTASSIUM CHLORIDE\SODIUM ACETATE\SODIUM CHLORIDE\TRISODIUM CITRATE DIHYDRATE
     Dates: start: 20180523, end: 20180523
  86. PHYSIO 140 [Concomitant]
     Active Substance: CALCIUM GLUCONATE\DEXTROSE\MAGNESIUM CHLORIDE\POTASSIUM CHLORIDE\SODIUM ACETATE\SODIUM CHLORIDE\TRISODIUM CITRATE DIHYDRATE
     Dates: start: 20180907, end: 20180912
  87. VOLUVEN [Concomitant]
     Active Substance: HYDROXYETHYL STARCH 130/0.4
     Route: 042
     Dates: start: 20180907, end: 20180907
  88. OXYGEN. [Concomitant]
     Active Substance: OXYGEN
     Indication: GENERAL ANAESTHESIA
     Dosage: LIQUEFIED OXYGEN
     Dates: start: 20180425, end: 20180430
  89. SOLACET D [Concomitant]
     Dates: start: 20180612, end: 20180612
  90. DAIKENCHUTO [Concomitant]
     Active Substance: HERBALS
     Dates: start: 20180507, end: 20180516
  91. GASCON (JAPAN) [Concomitant]
     Indication: ABDOMINAL DISTENSION
     Dates: start: 20180427, end: 20180516
  92. GASCON (JAPAN) [Concomitant]
     Dates: start: 20180517, end: 20180619
  93. METHADERM [Concomitant]
     Active Substance: DEXAMETHASONE DIPROPIONATE
     Indication: RASH MACULO-PAPULAR
     Dosage: METHADERM CREAM 0.1%
     Route: 061
     Dates: start: 20180413, end: 20180422
  94. BEPOTASTINE BESILATE [Concomitant]
     Active Substance: BEPOTASTINE BESYLATE
     Indication: SEASONAL ALLERGY
     Dates: start: 20180416, end: 20180424
  95. BEPOTASTINE BESILATE [Concomitant]
     Active Substance: BEPOTASTINE BESYLATE
     Dates: start: 20180517, end: 20180619
  96. ROSUVASTATIN CALCIUM. [Concomitant]
     Active Substance: ROSUVASTATIN CALCIUM
     Dates: start: 20180517, end: 20180619
  97. RESTAMIN KOWA [Concomitant]
     Dates: start: 20180612, end: 20180612
  98. CALONAL [Concomitant]
     Active Substance: ACETAMINOPHEN
     Indication: PAIN
     Dates: start: 20180507, end: 20180516
  99. ENALAPRIL MALEATE. [Concomitant]
     Active Substance: ENALAPRIL MALEATE
     Indication: HYPERTENSION
     Dates: start: 20190528
  100. CARBOPLATIN. [Suspect]
     Active Substance: CARBOPLATIN
     Indication: OVARIAN CANCER
     Dosage: AREA UNDER THE CURVE (AUC) OF 6 MILLIGRAMS PER MILLILITER*MINUTE (MG/ML*MIN) ON DAY 1 OF EACH 21?DAY
     Route: 042
     Dates: start: 20180220
  101. SYMPROIC [Concomitant]
     Active Substance: NALDEMEDINE
     Indication: CONSTIPATION
     Dates: start: 20180223, end: 20180424
  102. LYRICA [Concomitant]
     Active Substance: PREGABALIN
     Indication: PERIPHERAL SENSORY NEUROPATHY
     Dates: start: 20180316, end: 20180424
  103. NORITREN [Concomitant]
     Active Substance: NORTRIPTYLINE HYDROCHLORIDE
     Dates: start: 20180922
  104. FENTANYL. [Concomitant]
     Active Substance: FENTANYL
     Dates: start: 20180907, end: 20180907
  105. REMIFENTANIL [Concomitant]
     Active Substance: REMIFENTANIL
     Route: 042
     Dates: start: 20180907, end: 20180907
  106. PROPOFOL. [Concomitant]
     Active Substance: PROPOFOL
     Dates: start: 20180425, end: 20180425
  107. ACELIO [Concomitant]
     Active Substance: ACETAMINOPHEN
     Indication: PAIN
     Route: 042
     Dates: start: 20180425, end: 20180504
  108. DECADRON (DEXAMETHASONE SODIUM PHOSPHATE) [Concomitant]
     Active Substance: DEXAMETHASONE SODIUM PHOSPHATE
     Route: 042
     Dates: start: 20180522, end: 20180522
  109. DROLEPTAN [Concomitant]
     Active Substance: DROPERIDOL
     Indication: GENERAL ANAESTHESIA
     Dates: start: 20180425, end: 20180425
  110. OXYGEN. [Concomitant]
     Active Substance: OXYGEN
     Dates: start: 20180907, end: 20180907
  111. ROPION [Concomitant]
     Active Substance: FLURBIPROFEN AXETIL
     Indication: PAIN
     Route: 042
     Dates: start: 20180426, end: 20180426
  112. PRIMPERAN [Concomitant]
     Active Substance: METOCLOPRAMIDE HYDROCHLORIDE
     Dates: start: 20180619, end: 20180620
  113. GASTER [Concomitant]
     Active Substance: FAMOTIDINE
     Dates: start: 20180522, end: 20180522
  114. SOLACET F [Concomitant]
     Active Substance: CALCIUM CHLORIDE\POTASSIUM CHLORIDE\SODIUM ACETATE\SODIUM CHLORIDE
     Dates: start: 20180516, end: 20180517
  115. RESTAMIN KOWA [Concomitant]
     Indication: DRY SKIN
     Dates: start: 201802, end: 20180422
  116. DERMOVATE [Concomitant]
     Active Substance: CLOBETASOL
     Indication: INFUSION SITE EXTRAVASATION
     Dosage: 0.05 OTHER
     Route: 061
     Dates: start: 20180612, end: 20180618
  117. ANTEBATE [Concomitant]
     Active Substance: BETAMETHASONE DIPROPIONATE
     Indication: DRY SKIN
     Dosage: 0.05 OTHER
     Route: 061
     Dates: start: 20180613
  118. NORADRENALINE [Concomitant]
     Active Substance: NOREPINEPHRINE
     Dates: start: 20180907, end: 20180907
  119. OXYCODONE [Concomitant]
     Active Substance: OXYCODONE
     Indication: TUMOUR PAIN
  120. OXYCONTIN [Concomitant]
     Active Substance: OXYCODONE HYDROCHLORIDE
     Dates: start: 20180516, end: 20180523
  121. OXYCONTIN [Concomitant]
     Active Substance: OXYCODONE HYDROCHLORIDE
     Dates: start: 20180523, end: 20180619
  122. SYMPROIC [Concomitant]
     Active Substance: NALDEMEDINE
     Dates: start: 20180523, end: 20180619
  123. SYMPROIC [Concomitant]
     Active Substance: NALDEMEDINE
     Dates: start: 20180705
  124. HIRUDOID [Concomitant]
     Active Substance: GLYCOSAMINOGLYCANS
     Dates: start: 20180312
  125. LYRICA [Concomitant]
     Active Substance: PREGABALIN
     Dates: start: 20180509, end: 20180516
  126. ZYPREXA [Concomitant]
     Active Substance: OLANZAPINE
     Dates: start: 20180521, end: 20180604
  127. ESLAX [Concomitant]
     Active Substance: ROCURONIUM BROMIDE
     Dates: start: 20180425, end: 20180425
  128. BICANATE [Concomitant]
     Active Substance: CALCIUM CHLORIDE\MAGNESIUM CHLORIDE\POTASSIUM CHLORIDE\SODIUM BICARBONATE\SODIUM CHLORIDE\TRISODIUM CITRATE DIHYDRATE
     Dates: start: 20180425, end: 20180425
  129. SOLACET D [Concomitant]
     Dates: start: 20180506, end: 20180507
  130. OXIFAST [Concomitant]
     Active Substance: OXYCODONE
     Dates: start: 20180619
  131. CLEXANE [Concomitant]
     Active Substance: ENOXAPARIN SODIUM
     Indication: THROMBOSIS PROPHYLAXIS
     Dates: start: 20180426, end: 20180501
  132. ALLEGRA [Concomitant]
     Active Substance: FEXOFENADINE HYDROCHLORIDE
     Indication: RASH MACULO-PAPULAR
     Dates: start: 20180413, end: 20180415
  133. ROSUVASTATIN CALCIUM. [Concomitant]
     Active Substance: ROSUVASTATIN CALCIUM
     Dates: start: 20180711
  134. SOLACET F [Concomitant]
     Active Substance: CALCIUM CHLORIDE\POTASSIUM CHLORIDE\SODIUM ACETATE\SODIUM CHLORIDE
     Dates: start: 20180523, end: 20180524
  135. GRAN [Concomitant]
     Active Substance: FILGRASTIM
     Indication: NEUTROPHIL COUNT DECREASED
     Dosage: SYRINGE
     Dates: start: 20180416, end: 20180418
  136. CALONAL [Concomitant]
     Active Substance: ACETAMINOPHEN
     Indication: PROCEDURAL PAIN
     Dates: start: 20180517, end: 20180604
  137. RINDERON [Concomitant]
     Indication: INFUSION SITE EXTRAVASATION
     Route: 058
     Dates: start: 20180613, end: 20180613
  138. OXYCODONE [Concomitant]
     Active Substance: OXYCODONE
     Indication: PROCEDURAL PAIN
     Dates: start: 20180920
  139. MAGMITT [Concomitant]
     Active Substance: MAGNESIUM OXIDE
     Dates: start: 20180517, end: 20180619
  140. OXYCONTIN [Concomitant]
     Active Substance: OXYCODONE HYDROCHLORIDE
     Dates: start: 20180711
  141. OXINORM (JAPAN) [Concomitant]
     Active Substance: OXYCODONE HYDROCHLORIDE
     Indication: ARTHRALGIA
     Dates: start: 20180507, end: 20180516
  142. HYALEIN MINI [Concomitant]
     Active Substance: HYALURONATE SODIUM
     Dates: start: 20180422
  143. BICANATE [Concomitant]
     Active Substance: CALCIUM CHLORIDE\MAGNESIUM CHLORIDE\POTASSIUM CHLORIDE\SODIUM BICARBONATE\SODIUM CHLORIDE\TRISODIUM CITRATE DIHYDRATE
     Dates: start: 20180907, end: 20180907
  144. FLUMARIN (JAPAN) [Concomitant]
     Indication: INFECTION PROPHYLAXIS
     Dates: start: 20180425, end: 20180426
  145. PRIMPERAN [Concomitant]
     Active Substance: METOCLOPRAMIDE HYDROCHLORIDE
     Indication: NAUSEA
     Dates: start: 20180427, end: 20180427
  146. ANTEBATE [Concomitant]
     Active Substance: BETAMETHASONE DIPROPIONATE
     Indication: RASH MACULO-PAPULAR
     Dosage: ANTEBATE LOTION 0.05%
     Route: 061
     Dates: start: 20180413, end: 20180422
  147. ROSUVASTATIN CALCIUM. [Concomitant]
     Active Substance: ROSUVASTATIN CALCIUM
     Dates: start: 20180922

REACTIONS (3)
  - Enterocolitis [Recovered/Resolved]
  - Ileus [Recovered/Resolved]
  - Abdominal pain [Recovered/Resolved]

NARRATIVE: CASE EVENT DATE: 20180515
